FAERS Safety Report 9407499 (Version 30)
Quarter: 2015Q3

REPORT INFORMATION
  Report Type: Report from Study
  Country: CA (occurrence: CA)
  Receive Date: 20130718
  Receipt Date: 20150814
  Transmission Date: 20151125
  Serious: Yes (Death, Hospitalization, Other)
  Sender: FDA-Public Use
  Company Number: PHHY2013CA053515

PATIENT
  Age: 68 Year
  Sex: Male
  Weight: 67.57 kg

DRUGS (5)
  1. SANDOSTATIN [Suspect]
     Active Substance: OCTREOTIDE ACETATE
     Indication: GASTROINTESTINAL HAEMORRHAGE
     Dosage: 100 UG, TID
     Route: 058
     Dates: start: 20130402
  2. SULFA [Concomitant]
     Active Substance: UNSPECIFIED INGREDIENT
     Indication: PRODUCT USED FOR UNKNOWN INDICATION
     Dosage: UNK
     Route: 065
  3. AVELOX [Concomitant]
     Active Substance: MOXIFLOXACIN HYDROCHLORIDE
     Indication: PRODUCT USED FOR UNKNOWN INDICATION
     Route: 065
     Dates: start: 20130808
  4. SANDOSTATIN LAR DEPOT [Suspect]
     Active Substance: OCTREOTIDE ACETATE
     Indication: GASTROINTESTINAL HAEMORRHAGE
     Dosage: 30 MG, EVERY 4 WEEKS
     Route: 030
     Dates: start: 20130415, end: 20150706
  5. SULFA [Concomitant]
     Active Substance: UNSPECIFIED INGREDIENT
     Dosage: UNK
     Route: 065
     Dates: start: 20130709

REACTIONS (46)
  - Oedema peripheral [Unknown]
  - Fall [Unknown]
  - Malaise [Unknown]
  - Haematoma [Unknown]
  - Body temperature decreased [Unknown]
  - Cystitis [Unknown]
  - Faeces discoloured [Unknown]
  - Haemoglobin decreased [Unknown]
  - Diarrhoea haemorrhagic [Unknown]
  - Cardiac disorder [Unknown]
  - Chills [Unknown]
  - Chest discomfort [Unknown]
  - Neurogenic shock [Unknown]
  - Tremor [Unknown]
  - Anger [Unknown]
  - Feeling of despair [Unknown]
  - Headache [Not Recovered/Not Resolved]
  - Off label use [Unknown]
  - Haemoptysis [Unknown]
  - Haemorrhage [Unknown]
  - Urinary tract infection [Unknown]
  - Lung disorder [Unknown]
  - Pain in extremity [Recovering/Resolving]
  - Respiratory disorder [Unknown]
  - Dizziness postural [Unknown]
  - Productive cough [Unknown]
  - Death [Fatal]
  - Haematochezia [Recovered/Resolved]
  - Diarrhoea [Not Recovered/Not Resolved]
  - Cough [Unknown]
  - Polyp [Unknown]
  - Pneumonia [Unknown]
  - Asthenia [Unknown]
  - Anaemia [Unknown]
  - Hearing impaired [Unknown]
  - Neck pain [Unknown]
  - Myalgia [Unknown]
  - Musculoskeletal stiffness [Unknown]
  - Clostridium difficile infection [Unknown]
  - Bronchitis [Unknown]
  - Dyspnoea [Unknown]
  - Blood pressure diastolic decreased [Unknown]
  - Peripheral swelling [Unknown]
  - Dysuria [Unknown]
  - Respiratory rate increased [Unknown]
  - Decreased appetite [Unknown]

NARRATIVE: CASE EVENT DATE: 20130713
